FAERS Safety Report 17820141 (Version 1)
Quarter: 2020Q2

REPORT INFORMATION
  Report Type: Report from Study
  Country: US (occurrence: US)
  Receive Date: 20200525
  Receipt Date: 20200525
  Transmission Date: 20200714
  Serious: Yes (Other)
  Sender: FDA-Public Use
  Company Number: US-BEH-2020117861

PATIENT
  Age: 2 Year
  Sex: Male
  Weight: 11 kg

DRUGS (3)
  1. FRESH FROZEN PLASMA [Concomitant]
     Active Substance: HUMAN PLASMA
     Indication: PROCOAGULANT THERAPY
     Route: 065
  2. PROTHROMBIN COMPLEX CONCENTRATE NOS [Suspect]
     Active Substance: COAGULATION FACTOR IX HUMAN\COAGULATION FACTOR VII HUMAN\COAGULATION FACTOR X HUMAN\PROTHROMBIN
     Indication: CRANIOCEREBRAL INJURY
  3. PROTHROMBIN COMPLEX CONCENTRATE NOS [Suspect]
     Active Substance: COAGULATION FACTOR IX HUMAN\COAGULATION FACTOR VII HUMAN\COAGULATION FACTOR X HUMAN\PROTHROMBIN
     Indication: SURGERY
     Dosage: 25 INTERNATIONAL UNIT/KILOGRAM
     Route: 065

REACTIONS (3)
  - Device related thrombosis [Unknown]
  - Complication associated with device [Unknown]
  - Deep vein thrombosis [Unknown]
